FAERS Safety Report 7549234-8 (Version None)
Quarter: 2011Q2

REPORT INFORMATION
  Report Type: 
  Country: None (occurrence: None)
  Receive Date: 20110615
  Receipt Date: 20110609
  Transmission Date: 20111010
  Serious: Yes (Death, Hospitalization, Other)
  Sender: FDA-Public Use
  Company Number: PHHO2011AR08718

PATIENT
  Sex: Female
  Weight: 54.5 kg

DRUGS (2)
  1. AFINITOR [Suspect]
     Dosage: 10 MG, UNK
     Route: 048
     Dates: start: 20110518
  2. AFINITOR [Suspect]
     Indication: METASTATIC RENAL CELL CARCINOMA
     Dosage: 10 MG, UNK
     Route: 048
     Dates: start: 20110510, end: 20110517

REACTIONS (5)
  - RENAL FAILURE ACUTE [None]
  - PNEUMONIA [None]
  - PNEUMOTHORAX [None]
  - HEAD INJURY [None]
  - CONCOMITANT DISEASE PROGRESSION [None]
